FAERS Safety Report 18935596 (Version 1)
Quarter: 2021Q1

REPORT INFORMATION
  Report Type: Spontaneous
  Country: FR (occurrence: FR)
  Receive Date: 20210224
  Receipt Date: 20210224
  Transmission Date: 20210420
  Serious: Yes (Life-Threatening, Disabling, Other)
  Sender: FDA-Public Use
  Company Number: FR-OTSUKA-2021_000285

PATIENT
  Age: 23 Year
  Sex: Female

DRUGS (3)
  1. CYCLOPHOSPHAMIDE. [Suspect]
     Active Substance: CYCLOPHOSPHAMIDE
     Indication: BONE MARROW CONDITIONING REGIMEN
     Dosage: IN TOTAL: 60 MG/KG
     Route: 042
     Dates: start: 200901, end: 200901
  2. BOSULIF [Suspect]
     Active Substance: BOSUTINIB MONOHYDRATE
     Indication: CHRONIC MYELOID LEUKAEMIA
     Dosage: 200 MG, DAY
     Route: 048
     Dates: start: 20170922, end: 20201204
  3. BUSILVEX [Suspect]
     Active Substance: BUSULFAN
     Indication: BONE MARROW CONDITIONING REGIMEN
     Dosage: IN TOTAL: 0.8 MG/KG
     Route: 042
     Dates: start: 200901, end: 200901

REACTIONS (1)
  - Pleuroparenchymal fibroelastosis [Not Recovered/Not Resolved]

NARRATIVE: CASE EVENT DATE: 20201120
